FAERS Safety Report 14834129 (Version 1)
Quarter: 2018Q2

REPORT INFORMATION
  Report Type: Spontaneous
  Country: DE (occurrence: DE)
  Receive Date: 20180501
  Receipt Date: 20180501
  Transmission Date: 20180711
  Serious: Yes (Hospitalization)
  Sender: FDA-Public Use
  Company Number: DE-ALLERGAN-1823206US

PATIENT
  Age: 86 Year
  Sex: Female

DRUGS (12)
  1. METAMIZOL [Concomitant]
     Active Substance: METAMIZOLE SODIUM
     Indication: PRODUCT USED FOR UNKNOWN INDICATION
     Dosage: 500 MG, BID (1-0-1-0)
     Route: 065
  2. RISPERIDON [Concomitant]
     Active Substance: RISPERIDONE
     Indication: PRODUCT USED FOR UNKNOWN INDICATION
     Dosage: 0.5 MG, BID (1 MG, 0.5-0-0.5-0)
     Route: 065
  3. CITALOPRAM HYDROBROMIDE - BP [Suspect]
     Active Substance: CITALOPRAM HYDROBROMIDE
     Indication: PRODUCT USED FOR UNKNOWN INDICATION
     Dosage: 10 MG, QAM (20 MG, 0.5-0-0-0)
     Route: 065
  4. RAMIPRIL. [Concomitant]
     Active Substance: RAMIPRIL
     Indication: PRODUCT USED FOR UNKNOWN INDICATION
     Dosage: 2.5 MG, UNKNOWN (2.5|12.5 MG, 1-0-0.5-0)
     Route: 065
  5. PANTOPRAZOL [Concomitant]
     Active Substance: PANTOPRAZOLE SODIUM
     Indication: PRODUCT USED FOR UNKNOWN INDICATION
     Dosage: 40 MG, QAM  (1-0-0-0)
     Route: 065
  6. TROSPIUM [Concomitant]
     Active Substance: TROSPIUM
     Indication: PRODUCT USED FOR UNKNOWN INDICATION
     Dosage: 30 MG, BID (1-0-1-0)
     Route: 065
  7. SIMVASTATIN. [Concomitant]
     Active Substance: SIMVASTATIN
     Indication: PRODUCT USED FOR UNKNOWN INDICATION
     Dosage: 20 MG, QPM (0-0-1-0)
     Route: 065
  8. MELPERON [Concomitant]
     Active Substance: MELPERONE
     Indication: PRODUCT USED FOR UNKNOWN INDICATION
     Dosage: 5 ML, QPM  ( 0-0-1-0), JUICE
     Route: 065
  9. FELODIPIN [Concomitant]
     Active Substance: FELODIPINE
     Indication: PRODUCT USED FOR UNKNOWN INDICATION
     Dosage: 10 MG, QAM (1-0-0-0)
     Route: 065
  10. MACROGOL [Concomitant]
     Active Substance: POLYETHYLENE GLYCOLS
     Indication: PRODUCT USED FOR UNKNOWN INDICATION
     Dosage: 1 DF, BID (1-0-1-0)
     Route: 065
  11. ENOXAPARIN [Suspect]
     Active Substance: ENOXAPARIN
     Indication: PRODUCT USED FOR UNKNOWN INDICATION
     Dosage: 1 DF, QAM (1-0-0-0)
     Route: 065
  12. LEVOTHYROXIN [Concomitant]
     Active Substance: LEVOTHYROXINE
     Indication: PRODUCT USED FOR UNKNOWN INDICATION
     Dosage: 100 ?G, QAM (1-0-0-0)
     Route: 065

REACTIONS (2)
  - Haematemesis [Unknown]
  - Fatigue [Unknown]
